FAERS Safety Report 4429365-1 (Version None)
Quarter: 2004Q3

REPORT INFORMATION
  Report Type: 
  Country: None (occurrence: None)
  Receive Date: 20040816
  Receipt Date: 20040810
  Transmission Date: 20050211
  Serious: Yes (Hospitalization, Disabling)
  Sender: FDA-Public Use
  Company Number: ZONI001471

PATIENT
  Age: 35 Year
  Sex: Female
  Weight: 52 kg

DRUGS (7)
  1. ZONEGRAN [Suspect]
     Indication: MIGRAINE
     Dosage: UNKNOWN; ORAL
     Route: 048
     Dates: start: 20040715, end: 20040716
  2. TIGAN [Concomitant]
  3. VERAPAMIL [Concomitant]
  4. IMITREX [Concomitant]
  5. ORTHO-NOVIN (CONLUNETT) [Concomitant]
  6. DARVOCET [Concomitant]
  7. FROVA [Concomitant]

REACTIONS (4)
  - HEADACHE [None]
  - MYOPIA [None]
  - PHOTOPHOBIA [None]
  - VISION BLURRED [None]
